FAERS Safety Report 5521257-X (Version None)
Quarter: 2007Q4

REPORT INFORMATION
  Report Type: 
  Country: None (occurrence: None)
  Receive Date: 20071119
  Receipt Date: 20070620
  Transmission Date: 20080405
  Serious: Yes (Other)
  Sender: FDA-Public Use
  Company Number: US-ASTRAZENECA-2006UW03653

PATIENT
  Age: 628 Month
  Sex: Male
  Weight: 94.1 kg

DRUGS (6)
  1. SEROQUEL [Suspect]
     Indication: STRESS
     Route: 048
     Dates: start: 20030301, end: 20050401
  2. SEROQUEL [Suspect]
     Indication: DEPRESSION
     Route: 048
     Dates: start: 20030301, end: 20050401
  3. CLOZARIL [Concomitant]
     Dates: start: 20040101
  4. ZOLOFT [Concomitant]
     Dates: start: 20040101
  5. RISPERDAL [Concomitant]
     Indication: DEPRESSION
     Dates: start: 20040101, end: 20060901
  6. RISPERDAL [Concomitant]
     Indication: STRESS
     Dates: start: 20040101, end: 20060901

REACTIONS (6)
  - AMPUTATION [None]
  - CARDIAC DISORDER [None]
  - CARDIAC OPERATION [None]
  - DIABETES MELLITUS [None]
  - EMOTIONAL DISTRESS [None]
  - POOR PERIPHERAL CIRCULATION [None]
